FAERS Safety Report 12365956 (Version 1)
Quarter: 2016Q2

REPORT INFORMATION
  Report Type: Spontaneous
  Country: US (occurrence: US)
  Receive Date: 20160513
  Receipt Date: 20160513
  Transmission Date: 20160815
  Serious: No
  Sender: FDA-Public Use
  Company Number: US-GLAXOSMITHKLINE-US2016066814

PATIENT
  Age: 14 Year
  Sex: Male

DRUGS (1)
  1. FLONASE [Suspect]
     Active Substance: FLUTICASONE PROPIONATE
     Indication: EPISTAXIS
     Dosage: UNK

REACTIONS (6)
  - Nasal septum perforation [Unknown]
  - Off label use [Unknown]
  - Anxiety [Unknown]
  - Parosmia [Unknown]
  - Nasal disorder [Unknown]
  - Dyspnoea [Unknown]
